FAERS Safety Report 7048383-0 (Version None)
Quarter: 2010Q4

REPORT INFORMATION
  Report Type: 
  Country: None (occurrence: None)
  Receive Date: 20101015
  Receipt Date: 20101014
  Transmission Date: 20110411
  Serious: Yes (Hospitalization)
  Sender: FDA-Public Use
  Company Number: US-GILEAD-2010-0032565

PATIENT
  Age: 42 Year
  Sex: Female
  Weight: 78.996 kg

DRUGS (18)
  1. LETAIRIS [Suspect]
     Indication: PULMONARY ARTERIAL HYPERTENSION
     Route: 048
     Dates: start: 20020419
  2. WARFARIN SODIUM [Concomitant]
  3. REMODULIN [Concomitant]
  4. OXYGEN [Concomitant]
  5. SPIRONOLACTONE [Concomitant]
  6. PROPRANOLOL [Concomitant]
  7. TORSEMIDE [Concomitant]
  8. ENULOSE [Concomitant]
  9. METHIMAZOLE [Concomitant]
  10. METOLAZONE [Concomitant]
  11. DOCUSATE [Concomitant]
  12. BUPROPION [Concomitant]
  13. NEXIUM [Concomitant]
  14. ADCIRCA [Concomitant]
  15. TYLENOL W/ CODEINE [Concomitant]
  16. AMBIEN [Concomitant]
  17. VITAMIN D [Concomitant]
  18. POTASSIUM CHLORIDE [Concomitant]

REACTIONS (1)
  - GASTRIC DISORDER [None]
